FAERS Safety Report 11388781 (Version 2)
Quarter: 2015Q3

REPORT INFORMATION
  Report Type: Spontaneous
  Country: US (occurrence: US)
  Receive Date: 20150817
  Receipt Date: 20150820
  Transmission Date: 20151125
  Serious: Yes (Hospitalization, Other)
  Sender: FDA-Public Use
  Company Number: US-GLAXOSMITHKLINE-US2015117316

PATIENT
  Age: 74 Year
  Sex: Male

DRUGS (3)
  1. BYSTOLIC [Concomitant]
     Active Substance: NEBIVOLOL HYDROCHLORIDE
  2. ADVAIR HFA [Suspect]
     Active Substance: FLUTICASONE PROPIONATE\SALMETEROL XINAFOATE
     Indication: ASTHMA
     Dosage: 115/21
     Route: 055
     Dates: start: 2007
  3. BRILINTA [Concomitant]
     Active Substance: TICAGRELOR

REACTIONS (5)
  - Coronary arterial stent insertion [Recovered/Resolved]
  - Abdominal pain upper [Unknown]
  - Type 2 diabetes mellitus [Not Recovered/Not Resolved]
  - Atrioventricular block [Recovered/Resolved]
  - Dry mouth [Unknown]

NARRATIVE: CASE EVENT DATE: 201410
